FAERS Safety Report 9325061 (Version 4)
Quarter: 2014Q1

REPORT INFORMATION
  Report Type: Spontaneous
  Country: GB (occurrence: None)
  Receive Date: 20130530
  Receipt Date: 20140212
  Transmission Date: 20141002
  Serious: Yes (Hospitalization)
  Sender: FDA-Public Use
  Company Number: GB-20130023

PATIENT
  Age: 54 Year
  Sex: Female

DRUGS (2)
  1. DOTAREM [Suspect]
     Indication: NUCLEAR MAGNETIC RESONANCE IMAGING SPINAL
     Route: 042
     Dates: start: 20130508, end: 20130508
  2. SALINE (SODIUM CHLORIDE) (SODIUM  CHLORIDE) [Concomitant]

REACTIONS (9)
  - Muscle twitching [None]
  - Paraesthesia [None]
  - Tonic clonic movements [None]
  - Vomiting [None]
  - Weight bearing difficulty [None]
  - Dyskinesia [None]
  - Myoclonus [None]
  - Dyskinesia [None]
  - Paraesthesia [None]
